FAERS Safety Report 10469231 (Version 1)
Quarter: 2014Q3

REPORT INFORMATION
  Report Type: Spontaneous
  Country: US (occurrence: None)
  Receive Date: 20140922
  Receipt Date: 20140922
  Transmission Date: 20150326
  Serious: Yes (Other)
  Sender: FDA-Public Use
  Company Number: None

PATIENT
  Age: 76 Year
  Sex: Female
  Weight: 113.4 kg

DRUGS (2)
  1. XARELTO [Suspect]
     Active Substance: RIVAROXABAN
     Indication: ATRIAL FIBRILLATION
     Dosage: 1 PILL TWICE DAILY TAKEN BY MOUTH
     Route: 048
     Dates: start: 20131030, end: 20140630
  2. PRADAXA [Suspect]
     Active Substance: DABIGATRAN ETEXILATE MESYLATE
     Indication: ATRIAL FIBRILLATION
     Dosage: 1 TABLET BID TWICE DAILY TAKEN BY MOUTH
     Route: 048
     Dates: start: 20140821, end: 20140915

REACTIONS (8)
  - Swelling face [None]
  - Back pain [None]
  - Asthenia [None]
  - Renal disorder [None]
  - Dry mouth [None]
  - Hair texture abnormal [None]
  - Oedema peripheral [None]
  - Gait disturbance [None]

NARRATIVE: CASE EVENT DATE: 20140821
